FAERS Safety Report 4897496-8 (Version None)
Quarter: 2006Q1

REPORT INFORMATION
  Report Type: 
  Country: None (occurrence: None)
  Receive Date: 20060201
  Receipt Date: 20060120
  Transmission Date: 20060701
  Serious: Yes (Hospitalization)
  Sender: FDA-Public Use
  Company Number: FR-BRISTOL-MYERS SQUIBB COMPANY-13256573

PATIENT
  Age: 83 Year
  Sex: Female
  Weight: 61 kg

DRUGS (7)
  1. APROVEL TABS 150 MG [Suspect]
     Route: 048
     Dates: end: 20051201
  2. MOPRAL [Suspect]
  3. LASILIX [Suspect]
     Dosage: 40 MILLIGRAMS FORMULATION
     Dates: end: 20051201
  4. VOLTAREN [Concomitant]
  5. CORDARONE [Concomitant]
  6. LYSANXIA [Concomitant]
  7. DIAFUSOR [Concomitant]

REACTIONS (5)
  - HEADACHE [None]
  - HYPONATRAEMIA [None]
  - ORTHOSTATIC HYPOTENSION [None]
  - VERTIGO [None]
  - VOMITING [None]
